FAERS Safety Report 4679970-2 (Version None)
Quarter: 2005Q2

REPORT INFORMATION
  Report Type: 
  Country: None (occurrence: None)
  Receive Date: 20050531
  Receipt Date: 20050517
  Transmission Date: 20051028
  Serious: Yes (Hospitalization)
  Sender: FDA-Public Use
  Company Number: 2005076844

PATIENT
  Age: 35 Year
  Sex: Male

DRUGS (1)
  1. GENOTROPIN [Suspect]
     Indication: INSULIN-LIKE GROWTH FACTOR DECREASED
     Dosage: 0.6 MG (0.6 MG, 6 INJECTION EVERY  WEEK)
     Dates: start: 20050113, end: 20050128

REACTIONS (3)
  - IATROGENIC INJURY [None]
  - INTESTINAL PERFORATION [None]
  - PROCEDURAL COMPLICATION [None]
